FAERS Safety Report 9296672 (Version 8)
Quarter: 2013Q4

REPORT INFORMATION
  Report Type: Spontaneous
  Country: US (occurrence: None)
  Receive Date: 20130515
  Receipt Date: 20131119
  Transmission Date: 20140711
  Serious: Yes (Hospitalization, Other)
  Sender: FDA-Public Use
  Company Number: 2013US001556

PATIENT
  Age: 56 Year
  Sex: Female
  Weight: 101 kg

DRUGS (26)
  1. PONATINIB [Suspect]
     Indication: CHRONIC MYELOID LEUKAEMIA
     Route: 048
     Dates: start: 20130410, end: 20130414
  2. ANTIBIOTICS [Concomitant]
  3. ZANAFLEX [Concomitant]
  4. ATENOLOL (ATENOLOL) [Concomitant]
  5. BENAZEPRIL (BENAZEPRIL) [Concomitant]
  6. PRAVASTATIN (PRAVASTATIN) [Concomitant]
  7. AMLODIPINE (AMLODIPINE) [Concomitant]
  8. CLONIDINE (CLONIDINE) [Concomitant]
  9. ASPIRIN (ASPIRIN) [Concomitant]
  10. PRISTIQ (DESVENLAFAXINE SUCCINATE) [Concomitant]
  11. TRILEPTAL (OXCARBAZEPINE) [Concomitant]
  12. MIRAPEX (PRAMIPEXOLE DIHYDROCHLORIDE) [Concomitant]
  13. SEROQUEL (QUETIAPINE FUMARATE) [Concomitant]
  14. CLONAZEPAM (CLONAZEPAM) [Concomitant]
  15. TRAZODONE (TRAZODONE) [Concomitant]
  16. FLONASE (FLUTICASONE (FLUTICASONE PROPIONATE) [Concomitant]
  17. PANTOPRAZOLE (PANTOPRAZOLE) [Concomitant]
  18. ESTRADIOL (ESTRADIOL) [Concomitant]
  19. LEVOTHYROXINE (LEVOTHYROXINE) [Concomitant]
  20. JANUVIA (SITAGLIPTIN PHOSPHATE) [Concomitant]
  21. ZYRTEC (CETIRIZINE HYDOCHLORIDE) [Concomitant]
  22. FENOFIBRATE (FENOFIBRATE) (FENOFIBRATE) [Concomitant]
  23. ALLEGRA [Concomitant]
  24. METFORMIN (METFORMIN) [Concomitant]
  25. PATANASE (OLOPATADINE HYDROCHLORIDE) [Concomitant]
  26. TRIMETHOPRIM  (TRIMETHOPRIM) [Concomitant]

REACTIONS (32)
  - Headache [None]
  - Diastolic dysfunction [None]
  - Influenza like illness [None]
  - Dyspnoea [None]
  - Hyperhidrosis [None]
  - Aspartate aminotransferase increased [None]
  - Alanine aminotransferase increased [None]
  - Left ventricular hypertrophy [None]
  - Electrocardiogram T wave abnormal [None]
  - Glomerular filtration rate decreased [None]
  - Chest discomfort [None]
  - Left atrial dilatation [None]
  - White blood cell count increased [None]
  - Red blood cell count decreased [None]
  - Haemoglobin decreased [None]
  - Haematocrit decreased [None]
  - Pyrexia [None]
  - Nausea [None]
  - Myalgia [None]
  - Influenza like illness [None]
  - Oesophageal spasm [None]
  - Blood pressure increased [None]
  - Urine analysis abnormal [None]
  - Nitrite urine present [None]
  - Red blood cells urine positive [None]
  - White blood cells urine positive [None]
  - Bacterial test positive [None]
  - Myocardial infarction [None]
  - Electrocardiogram T wave normal [None]
  - Electrocardiogram QT shortened [None]
  - Non-cardiac chest pain [None]
  - Blood glucose increased [None]
